FAERS Safety Report 5515677-7 (Version None)
Quarter: 2007Q4

REPORT INFORMATION
  Report Type: 
  Country: None (occurrence: None)
  Receive Date: 20071113
  Receipt Date: 20070817
  Transmission Date: 20080405
  Serious: No
  Sender: FDA-Public Use
  Company Number: A0671277A

PATIENT
  Age: 86 Year
  Sex: Female

DRUGS (3)
  1. COREG [Suspect]
     Dosage: 12.5MG TWICE PER DAY
     Route: 048
  2. COUMADIN [Concomitant]
  3. THYROID TAB [Concomitant]

REACTIONS (2)
  - ASTHENIA [None]
  - HYPOTENSION [None]
